FAERS Safety Report 23312272 (Version 1)
Quarter: 2023Q4

REPORT INFORMATION
  Report Type: Spontaneous
  Country: US (occurrence: US)
  Receive Date: 20231219
  Receipt Date: 20231219
  Transmission Date: 20240110
  Serious: Yes (Other)
  Sender: FDA-Public Use
  Company Number: US-SA-SAC20231218000008

PATIENT
  Age: 38 Year
  Sex: Male

DRUGS (1)
  1. DUPIXENT [Suspect]
     Active Substance: DUPILUMAB
     Indication: Dermatitis atopic
     Dosage: 300 MG, QOW
     Route: 058

REACTIONS (7)
  - Syncope [Unknown]
  - Eyelid bleeding [Unknown]
  - Injection site mass [Unknown]
  - Scab [Unknown]
  - Eyelid irritation [Unknown]
  - Pruritus [Unknown]
  - Injection site swelling [Unknown]
